FAERS Safety Report 8955872 (Version 1)
Quarter: 2012Q4

REPORT INFORMATION
  Report Type: 
  Country: GR (occurrence: GR)
  Receive Date: 20121210
  Receipt Date: 20121210
  Transmission Date: 20130627
  Serious: Yes (Hospitalization, Other)
  Sender: FDA-Public Use
  Company Number: GR-ACTELION-A-CH2012-75821

PATIENT
  Age: 53 Year
  Sex: Female

DRUGS (9)
  1. TRACLEER [Suspect]
     Indication: PULMONARY ARTERIAL HYPERTENSION
     Dosage: 125 mg, bid
     Route: 048
  2. TRACLEER [Suspect]
     Dosage: UNK
     Route: 048
  3. ACENOCUMAROL [Concomitant]
  4. EPOPROSTENOL [Concomitant]
     Dosage: 2 ng/kg, per min
     Route: 042
  5. EPOPROSTENOL [Concomitant]
     Dosage: 10 ng/kg, UNK
     Route: 042
  6. EPOPROSTENOL [Concomitant]
     Dosage: 40 ng/kg, UNK
     Route: 042
  7. EPOPROSTENOL [Concomitant]
     Dosage: 2 ng/kg, UNK
     Route: 042
     Dates: end: 201007
  8. SILDENAFIL [Concomitant]
     Dosage: 20 mg, tid
     Route: 048
     Dates: start: 201001
  9. SILDENAFIL [Concomitant]
     Dosage: 40 UNK, UNK

REACTIONS (5)
  - Pulmonary arterial hypertension [Recovered/Resolved]
  - Disease progression [Recovered/Resolved]
  - Syncope [Recovered/Resolved]
  - Device related infection [Unknown]
  - Dyspnoea exertional [Recovering/Resolving]
